FAERS Safety Report 17649997 (Version 2)
Quarter: 2020Q4

REPORT INFORMATION
  Report Type: Other
  Country: GB (occurrence: GB)
  Receive Date: 20200409
  Receipt Date: 20201014
  Transmission Date: 20210113
  Serious: Yes (Other)
  Sender: FDA-Public Use
  Company Number: GB-ROCHE-2577075

PATIENT
  Sex: Male

DRUGS (1)
  1. ESBRIET [Suspect]
     Active Substance: PIRFENIDONE
     Indication: PRODUCT USED FOR UNKNOWN INDICATION
     Route: 065

REACTIONS (8)
  - Rash [Unknown]
  - Blister [Unknown]
  - Insomnia [Unknown]
  - Furuncle [Unknown]
  - Neoplasm malignant [Unknown]
  - Cerebrovascular accident [Recovering/Resolving]
  - Fatigue [Unknown]
  - Pruritus [Unknown]
